FAERS Safety Report 8943853 (Version 1)
Quarter: 2012Q4

REPORT INFORMATION
  Report Type: 
  Country: US (occurrence: US)
  Receive Date: 20121204
  Receipt Date: 20121204
  Transmission Date: 20130627
  Serious: Yes (Other)
  Sender: FDA-Public Use
  Company Number: US-BAYER-2012-126406

PATIENT
  Age: 22 Year
  Sex: Female
  Weight: 49.89 kg

DRUGS (4)
  1. BAYER ADVANCED ASPIRIN EXTRA STRENGTH [Suspect]
     Indication: PAIN MENSTRUAL
     Dosage: 1 DF, BID
     Route: 048
     Dates: start: 20121119, end: 20121122
  2. TOPAMAX [Concomitant]
     Dosage: 100 mg, UNK
  3. LEVETIRACETAM [Concomitant]
     Dosage: 750 mg, UNK
  4. SPRINTEC [Concomitant]

REACTIONS (3)
  - Choking [Recovered/Resolved]
  - Chest pain [Recovered/Resolved]
  - Nausea [Recovered/Resolved]
